FAERS Safety Report 23291455 (Version 1)
Quarter: 2023Q4

REPORT INFORMATION
  Report Type: Spontaneous
  Country: DE (occurrence: DE)
  Receive Date: 20231213
  Receipt Date: 20231213
  Transmission Date: 20240110
  Serious: Yes (Hospitalization, Other)
  Sender: FDA-Public Use
  Company Number: None

PATIENT
  Age: 46 Year
  Weight: 69 kg

DRUGS (5)
  1. INDAPAMIDE [Suspect]
     Active Substance: INDAPAMIDE
     Indication: Hypertension
     Dosage: 1 TIME IN THE MORNING FOR BREAKFAST
     Route: 048
     Dates: start: 20231012, end: 20231016
  2. Pantoprozol [Concomitant]
     Dosage: PANTOPRAZOLE 40 MG 1X IN THE MORNING AND EVENING
     Route: 048
     Dates: start: 20231006
  3. INDAPAMIDE [Suspect]
     Active Substance: INDAPAMIDE
     Indication: Hypertension
     Route: 048
     Dates: start: 20231009, end: 20231011
  4. CANDESARTAN [Concomitant]
     Active Substance: CANDESARTAN
     Dosage: CANDESARTAN 8MG 1X
     Route: 048
     Dates: start: 20231006
  5. FOSTER [Concomitant]
     Active Substance: BECLOMETHASONE\FORMOTEROL
     Dosage: FOSTER ASTHMA SPRAY TWICE DAILY
     Route: 065
     Dates: start: 20231006

REACTIONS (23)
  - Hypertensive crisis [Recovered/Resolved]
  - Dizziness [Recovered/Resolved]
  - Eye pain [Recovered/Resolved]
  - Vertigo [Recovered/Resolved]
  - Constipation [Recovered/Resolved]
  - Visual impairment [Recovered/Resolved]
  - Abdominal pain upper [Recovered/Resolved]
  - Malaise [Recovered/Resolved]
  - Disturbance in attention [Recovered/Resolved]
  - Type IV hypersensitivity reaction [Recovered/Resolved]
  - Diarrhoea [Recovered/Resolved]
  - Dyspnoea [Recovered/Resolved]
  - Malaise [Recovered/Resolved]
  - Asthenia [Recovered/Resolved]
  - Headache [Recovered/Resolved]
  - Influenza like illness [Recovered/Resolved]
  - Nausea [Recovered/Resolved]
  - Fatigue [Recovered/Resolved]
  - Pain in extremity [Recovered/Resolved]
  - Coordination abnormal [Recovered/Resolved]
  - Abdominal pain [Recovered/Resolved]
  - Muscle twitching [Recovered/Resolved]
  - Motor dysfunction [Recovered/Resolved]

NARRATIVE: CASE EVENT DATE: 20231001
